FAERS Safety Report 9190190 (Version 2)
Quarter: 2014Q2

REPORT INFORMATION
  Report Type: Report from Study
  Country: US (occurrence: US)
  Receive Date: 20130326
  Receipt Date: 20140513
  Transmission Date: 20141212
  Serious: Yes (Other)
  Sender: FDA-Public Use
  Company Number: PHEH2013US006636

PATIENT
  Sex: Female

DRUGS (5)
  1. DIOVAN HCT [Suspect]
     Indication: HYPERTENSION
     Dosage: 1 DF, (180/12.5 MG) QD
     Route: 048
  2. DIOVAN HCT [Suspect]
     Indication: CARDIAC DISORDER
     Dosage: 1 DF, (160 VALS AND 12.5 HCTZ)
  3. DIOVAN [Suspect]
  4. LABETALOL HCL [Suspect]
     Indication: CARDIAC DISORDER
     Dosage: TWICE DAILY
  5. MAXAIR [Concomitant]
     Indication: ASTHMA
     Dosage: UNK UKN, UNK

REACTIONS (6)
  - Intracranial aneurysm [Unknown]
  - Body fat disorder [Unknown]
  - Cardiac murmur [Unknown]
  - Delirium [Unknown]
  - Hyponatraemia [Unknown]
  - Hypertension [Unknown]
